FAERS Safety Report 14196888 (Version 5)
Quarter: 2018Q2

REPORT INFORMATION
  Report Type: Report from Study
  Country: BR (occurrence: BR)
  Receive Date: 20171116
  Receipt Date: 20180523
  Transmission Date: 20180711
  Serious: Yes (Other)
  Sender: FDA-Public Use
  Company Number: PHHY2017BR043182

PATIENT
  Sex: Female
  Weight: 59 kg

DRUGS (4)
  1. COSENTYX [Suspect]
     Active Substance: SECUKINUMAB
     Dosage: 300 MG, QMO (TWO PENS)
     Route: 058
     Dates: start: 20170929
  2. COSENTYX [Suspect]
     Active Substance: SECUKINUMAB
     Dosage: 2 DF, QMO (TWO PENS )
     Route: 058
  3. COSENTYX [Suspect]
     Active Substance: SECUKINUMAB
     Indication: PSORIASIS
     Dosage: 300 MG, QMO (TWO PENS)
     Route: 058
     Dates: start: 201705
  4. COSENTYX [Suspect]
     Active Substance: SECUKINUMAB
     Indication: PSORIATIC ARTHROPATHY
     Dosage: 300 MG, QW (TWO PENS)
     Route: 058
     Dates: start: 201703

REACTIONS (20)
  - Poor quality sleep [Unknown]
  - Drug effect incomplete [Unknown]
  - Acquired immunodeficiency syndrome [Unknown]
  - Eye infection [Not Recovered/Not Resolved]
  - Rash [Not Recovered/Not Resolved]
  - Insomnia [Unknown]
  - Candida infection [Recovering/Resolving]
  - Skin lesion [Unknown]
  - Rhinitis [Recovered/Resolved]
  - Rhinitis [Recovering/Resolving]
  - Nightmare [Not Recovered/Not Resolved]
  - Asthenia [Unknown]
  - Influenza [Unknown]
  - Conjunctivitis allergic [Unknown]
  - Skin wound [Recovering/Resolving]
  - Psoriasis [Unknown]
  - Pain in extremity [Recovering/Resolving]
  - Nail infection [Recovering/Resolving]
  - Decreased immune responsiveness [Unknown]
  - Infection [Unknown]
